FAERS Safety Report 16771573 (Version 1)
Quarter: 2019Q3

REPORT INFORMATION
  Report Type: Spontaneous
  Country: US (occurrence: US)
  Receive Date: 20190716
  Receipt Date: 20190716
  Transmission Date: 20191005
  Serious: Yes (Hospitalization)
  Sender: FDA-Public Use
  Company Number: None

PATIENT
  Age: 52 Year
  Sex: Male

DRUGS (12)
  1. AMBIEN TAB [Concomitant]
  2. LEXAPRO TAB [Concomitant]
  3. WARFARIN [Concomitant]
     Active Substance: WARFARIN
  4. ZOLPIDEM [Concomitant]
     Active Substance: ZOLPIDEM TARTRATE
  5. TADALAFIL 20MG TAB [Suspect]
     Active Substance: TADALAFIL
     Indication: PULMONARY ARTERIAL HYPERTENSION
     Route: 048
     Dates: start: 20150618
  6. PAROXETINE. [Concomitant]
     Active Substance: PAROXETINE
  7. FAMCICLOVIR TAB [Concomitant]
  8. PRIMLEV [Concomitant]
     Active Substance: ACETAMINOPHEN\OXYCODONE HYDROCHLORIDE
  9. MEXILETINE [Concomitant]
     Active Substance: MEXILETINE
  10. DIGOX TAB [Concomitant]
  11. NADOLOL. [Concomitant]
     Active Substance: NADOLOL
  12. SEOQUEL [Concomitant]

REACTIONS (1)
  - Hospitalisation [None]

NARRATIVE: CASE EVENT DATE: 20190708
